FAERS Safety Report 25143772 (Version 1)
Quarter: 2025Q2

REPORT INFORMATION
  Report Type: Report from Study
  Country: US (occurrence: US)
  Receive Date: 20250401
  Receipt Date: 20250401
  Transmission Date: 20250716
  Serious: Yes (Other)
  Sender: ROCHE
  Company Number: US-ROCHE-10000240049

PATIENT
  Age: 57 Year
  Sex: Female

DRUGS (1)
  1. ACTEMRA ACTPEN [Suspect]
     Active Substance: TOCILIZUMAB
     Indication: Rheumatoid arthritis
     Dosage: INJECT THE CONTENTS OF ONE DEVICE UNDER THE SKIN ONCE WEEKLY (EVERY 7 DAYS)
     Route: 058

REACTIONS (7)
  - Pancreatitis [Unknown]
  - Palpitations [Unknown]
  - Weight gain poor [Unknown]
  - Hypertension [Unknown]
  - Confusional state [Unknown]
  - Anxiety [Unknown]
  - Myalgia [Unknown]
